FAERS Safety Report 6283155-6 (Version None)
Quarter: 2009Q3

REPORT INFORMATION
  Report Type: 
  Country: None (occurrence: None)
  Receive Date: 20090724
  Receipt Date: 20090715
  Transmission Date: 20100115
  Serious: Yes (Hospitalization)
  Sender: FDA-Public Use
  Company Number: B0571456A

PATIENT
  Sex: Male

DRUGS (2)
  1. ATRIANCE [Suspect]
     Dosage: 2.75G PER DAY
     Route: 042
     Dates: start: 20090221, end: 20090225
  2. DEXAMETHASONE [Concomitant]
     Indication: DRUG USE FOR UNKNOWN INDICATION
     Dosage: 20MG PER DAY
     Route: 048
     Dates: start: 20090221, end: 20090314

REACTIONS (6)
  - DISTURBANCE IN ATTENTION [None]
  - DRUG TOXICITY [None]
  - HYPOREFLEXIA [None]
  - MEMORY IMPAIRMENT [None]
  - PETIT MAL EPILEPSY [None]
  - SOMNOLENCE [None]
